FAERS Safety Report 18511885 (Version 6)
Quarter: 2021Q4

REPORT INFORMATION
  Report Type: Report from Study
  Country: US (occurrence: US)
  Receive Date: 20201117
  Receipt Date: 20211020
  Transmission Date: 20220304
  Serious: Yes (Hospitalization, Other)
  Sender: FDA-Public Use
  Company Number: US-TAKEDA-2020TUS050013

PATIENT
  Sex: Female
  Weight: 71 kg

DRUGS (18)
  1. HUMAN IMMUNOGLOBULIN G [Suspect]
     Active Substance: HUMAN IMMUNOGLOBULIN G
     Indication: Immunodeficiency common variable
     Dosage: 35 GRAM, Q4WEEKS
     Route: 042
     Dates: start: 20200923
  2. ACETAMINOPHEN [Concomitant]
     Active Substance: ACETAMINOPHEN
  3. DIPHENHYDRAMINE [Concomitant]
     Active Substance: DIPHENHYDRAMINE
  4. HEPARIN [Concomitant]
     Active Substance: HEPARIN SODIUM
  5. SODIUM CHLORIDE [Concomitant]
     Active Substance: SODIUM CHLORIDE
  6. EPINEPHRINE [Concomitant]
     Active Substance: EPINEPHRINE
  7. VITAMIN D3 [Concomitant]
     Active Substance: CHOLECALCIFEROL
  8. FIBER [Concomitant]
     Active Substance: PSYLLIUM HUSK
  9. PROAIR HFA [Concomitant]
     Active Substance: ALBUTEROL SULFATE
  10. VOLTARENE (DICLOFENAC SODIUM) [Concomitant]
     Active Substance: DICLOFENAC SODIUM
     Dosage: UNK
     Route: 065
  11. FOLIC ACID\IRON\MINERALS\VITAMINS [Concomitant]
     Active Substance: FOLIC ACID\IRON\MINERALS\VITAMINS
  12. LITHIUM [Concomitant]
     Active Substance: LITHIUM
     Dosage: UNK
     Route: 065
  13. ADVAIR HFA [Concomitant]
     Active Substance: FLUTICASONE PROPIONATE\SALMETEROL XINAFOATE
     Dosage: UNK
     Route: 065
  14. CYTOMEL [Concomitant]
     Active Substance: LIOTHYRONINE SODIUM
     Dosage: UNK
     Route: 065
  15. PROPRANOLOL [Concomitant]
     Active Substance: PROPRANOLOL HYDROCHLORIDE
     Dosage: UNK
     Route: 065
  16. LEXAPRO [Concomitant]
     Active Substance: ESCITALOPRAM OXALATE
     Dosage: UNK
     Route: 065
  17. DOXEPIN [Concomitant]
     Active Substance: DOXEPIN
     Dosage: UNK
     Route: 065
  18. Buspiron [Concomitant]
     Dosage: UNK
     Route: 065

REACTIONS (8)
  - Mental disorder [Unknown]
  - Sinusitis [Unknown]
  - Suicidal ideation [Unknown]
  - Staphylococcal infection [Unknown]
  - Weight fluctuation [Unknown]
  - Headache [Unknown]
  - Injection site extravasation [Unknown]
  - Injection site pain [Unknown]
